FAERS Safety Report 14425043 (Version 3)
Quarter: 2018Q1

REPORT INFORMATION
  Report Type: Spontaneous
  Country: CH (occurrence: CH)
  Receive Date: 20180123
  Receipt Date: 20180221
  Transmission Date: 20180509
  Serious: Yes (Other)
  Sender: FDA-Public Use
  Company Number: CH-PFIZER INC-2018027901

PATIENT
  Age: 60 Year
  Sex: Female

DRUGS (1)
  1. EFFEXOR XR [Suspect]
     Active Substance: VENLAFAXINE HYDROCHLORIDE
     Dosage: 37.5 MG, ALTERNATE DAY (ONE DAY YES, ONE DAY NO)
     Route: 048

REACTIONS (2)
  - Drug prescribing error [Unknown]
  - Drug dependence [Unknown]
